FAERS Safety Report 9036049 (Version 1)
Quarter: 2013Q1

REPORT INFORMATION
  Report Type: Report from Study
  Country: US (occurrence: US)
  Receive Date: 20130129
  Receipt Date: 20130129
  Transmission Date: 20140127
  Serious: No
  Sender: FDA-Public Use
  Company Number: US-ABBOTT-12P-163-0918105-00

PATIENT
  Age: 64 Year
  Sex: Female

DRUGS (4)
  1. HUMIRA 40 MG/0.8 ML PEN [Suspect]
     Indication: PSORIASIS
     Dates: start: 20120130
  2. NEXIUM [Concomitant]
     Indication: DYSPEPSIA
  3. IBUPROFEN [Concomitant]
     Indication: PAIN
  4. TYLENOL [Concomitant]
     Indication: PAIN

REACTIONS (6)
  - Rash macular [Not Recovered/Not Resolved]
  - Headache [Not Recovered/Not Resolved]
  - Rash [Not Recovered/Not Resolved]
  - Eye pain [Not Recovered/Not Resolved]
  - Hordeolum [Not Recovered/Not Resolved]
  - Eyelid oedema [Not Recovered/Not Resolved]
